FAERS Safety Report 4666578-8 (Version None)
Quarter: 2005Q2

REPORT INFORMATION
  Report Type: 
  Country: None (occurrence: None)
  Receive Date: 20050518
  Receipt Date: 20050505
  Transmission Date: 20051028
  Serious: Yes (Hospitalization)
  Sender: FDA-Public Use
  Company Number: 2005043675

PATIENT
  Age: 23 Year
  Sex: Female
  Weight: 52.1637 kg

DRUGS (4)
  1. ZOLOFT [Suspect]
     Indication: DEPRESSION
     Dosage: 100 MG (100 MG, 1 IN1 D), ORAL
     Route: 048
  2. ZOLOFT [Suspect]
     Indication: PANIC ATTACK
     Dosage: 100 MG (100 MG, 1 IN1 D), ORAL
     Route: 048
  3. SYNTHROID [Concomitant]
  4. ORTHO TRI-CYCLEN [Concomitant]

REACTIONS (4)
  - CONDITION AGGRAVATED [None]
  - DEPRESSION [None]
  - MENTAL DISORDER [None]
  - PANIC ATTACK [None]
